FAERS Safety Report 5080854-9 (Version None)
Quarter: 2006Q3

REPORT INFORMATION
  Report Type: 
  Country: None (occurrence: None)
  Receive Date: 20060810
  Receipt Date: 20060726
  Transmission Date: 20061208
  Serious: Yes (Hospitalization)
  Sender: FDA-Public Use
  Company Number: 227926

PATIENT
  Age: 70 Year
  Sex: Male

DRUGS (9)
  1. AVASTIN [Suspect]
     Indication: COLORECTAL CANCER
     Dosage: 7.5 MG/KG, 1/WEEK, INTRAVENOUS
     Route: 042
     Dates: start: 20060704
  2. CAPECITABINE (CAPECITABINE) [Suspect]
     Indication: COLORECTAL CANCER
     Dosage: 1000 MG/M2, BID, ORAL
     Route: 048
     Dates: start: 20060704, end: 20060717
  3. OXALIPLATIN [Suspect]
     Indication: COLORECTAL CANCER
     Dosage: 130 MG/M2, Q3W, INTRAVENOUS
     Route: 042
     Dates: start: 20060704
  4. ERBITUX [Suspect]
     Indication: COLORECTAL CANCER
     Dosage: 400 MG/M2, CYCLE 1, INTRAVENOUS; SEE IMAGE
     Route: 042
     Dates: start: 20060704
  5. ASCAL (CARBASPIRIN CALCIUM) [Concomitant]
  6. SELOKEEN (METOPROLOL TARTRATE) [Concomitant]
  7. ENALAPRIL MALEATE [Concomitant]
  8. ZOCOR [Concomitant]
  9. UNKNOWN DRUG (GENERIC COMPONENT(S) NOT KNOWN) [Concomitant]

REACTIONS (7)
  - DIARRHOEA [None]
  - HAEMOGLOBIN DECREASED [None]
  - MALAISE [None]
  - NAUSEA [None]
  - PLATELET COUNT DECREASED [None]
  - VOMITING [None]
  - WHITE BLOOD CELL COUNT DECREASED [None]
